FAERS Safety Report 7503191-9 (Version None)
Quarter: 2011Q2

REPORT INFORMATION
  Report Type: 
  Country: None (occurrence: None)
  Receive Date: 20110518
  Receipt Date: 20110504
  Transmission Date: 20111010
  Serious: Yes (Other)
  Sender: FDA-Public Use
  Company Number: 2011P1005969

PATIENT
  Age: 51 Year
  Sex: Male
  Weight: 77.1115 kg

DRUGS (9)
  1. LIDODERM [Concomitant]
  2. MELOXICAM [Concomitant]
  3. FENTANYL [Suspect]
     Indication: PAIN
     Dosage: 1 PATCH;Q72HR;TDER  ;1 PATCH Q72HR;TDER
     Route: 062
     Dates: start: 20110210, end: 20110224
  4. FENTANYL [Suspect]
     Indication: PAIN
     Dosage: 1 PATCH;Q72HR;TDER  ;1 PATCH Q72HR;TDER
     Route: 062
     Dates: start: 20110412
  5. FENTANYL-12 [Suspect]
     Indication: PAIN
     Dosage: 1 PATCH;Q72HR;TDER ; 1 PATCH;Q72HR;TDER
     Route: 062
     Dates: start: 20101012, end: 20110209
  6. FENTANYL-12 [Suspect]
     Indication: PAIN
     Dosage: 1 PATCH;Q72HR;TDER ; 1 PATCH;Q72HR;TDER
     Route: 062
     Dates: start: 20110225, end: 20110411
  7. FENTANYL [Suspect]
     Indication: PAIN
     Dosage: 1 PATCH;Q72HR;TDER ; 1 PATCH Q72HR;TDER ; 1 PATCH;Q72HR;TDER
     Route: 062
     Dates: start: 20101012, end: 20110209
  8. FENTANYL [Suspect]
     Indication: PAIN
     Dosage: 1 PATCH;Q72HR;TDER ; 1 PATCH Q72HR;TDER ; 1 PATCH;Q72HR;TDER
     Route: 062
     Dates: start: 20110225, end: 20110411
  9. FENTANYL [Suspect]
     Indication: PAIN
     Dosage: 1 PATCH;Q72HR;TDER ; 1 PATCH Q72HR;TDER ; 1 PATCH;Q72HR;TDER
     Route: 062
     Dates: start: 20101008, end: 20101011

REACTIONS (10)
  - VITAMIN D DECREASED [None]
  - BLOOD CALCIUM DECREASED [None]
  - OSTEOPOROSIS [None]
  - SKIN WRINKLING [None]
  - APPLICATION SITE REACTION [None]
  - DRUG EFFECT DECREASED [None]
  - CHOLELITHIASIS [None]
  - DEPRESSED MOOD [None]
  - RIB FRACTURE [None]
  - FALL [None]
